FAERS Safety Report 5955118-9 (Version None)
Quarter: 2008Q4

REPORT INFORMATION
  Report Type: 
  Country: None (occurrence: None)
  Receive Date: 20081113
  Receipt Date: 20081113
  Transmission Date: 20090506
  Serious: No
  Sender: FDA-Public Use
  Company Number: None

PATIENT
  Age: 28 Year
  Sex: Male
  Weight: 93 kg

DRUGS (3)
  1. VORICONAZOLE [Suspect]
     Indication: ASPERGILLOSIS
     Dosage: 400 MG Q12H IV
     Route: 042
     Dates: start: 20081028, end: 20081109
  2. PHENERGAN HCL [Concomitant]
  3. DILAUDID [Concomitant]

REACTIONS (1)
  - HALLUCINATION [None]
